FAERS Safety Report 7763961-9 (Version None)
Quarter: 2011Q3

REPORT INFORMATION
  Report Type: 
  Country: None (occurrence: None)
  Receive Date: 20110921
  Receipt Date: 20100923
  Transmission Date: 20111222
  Serious: No
  Sender: FDA-Public Use
  Company Number: US-BAYER-201037225NA

PATIENT
  Sex: Female

DRUGS (4)
  1. MIRENA [Suspect]
     Dosage: 20 ?G/D, CONT
     Route: 015
  2. MIRENA [Suspect]
     Dosage: 20 ?G/D, CONT
     Route: 015
     Dates: start: 20090801
  3. MIRENA [Suspect]
     Indication: CONTRACEPTION
     Dosage: 20 ?G/D, CONT
     Route: 015
     Dates: start: 20090801
  4. PROGESTERONE [Concomitant]
     Indication: MOOD SWINGS
     Dosage: UNK
     Route: 061
     Dates: start: 20100101

REACTIONS (2)
  - VAGINAL HAEMORRHAGE [None]
  - AMENORRHOEA [None]
